FAERS Safety Report 18960443 (Version 2)
Quarter: 2021Q1

REPORT INFORMATION
  Report Type: Spontaneous
  Country: CA (occurrence: CA)
  Receive Date: 20210302
  Receipt Date: 20210305
  Transmission Date: 20210420
  Serious: Yes (Hospitalization)
  Sender: FDA-Public Use
  Company Number: CA-PFIZER INC-2021153100

PATIENT
  Age: 59 Year
  Sex: Male

DRUGS (15)
  1. CALCIUM [Concomitant]
     Active Substance: CALCIUM
     Dosage: UNK
  2. NOVO?RAMIPRIL [Concomitant]
     Active Substance: RAMIPRIL
     Dosage: 2.5 MG
     Route: 065
  3. RIVASA [Concomitant]
     Active Substance: ASPIRIN
     Dosage: 81 MG
     Route: 065
  4. PANTOPRAZOLE [Concomitant]
     Active Substance: PANTOPRAZOLE
     Dosage: 40 MG
     Route: 065
  5. RIVA EZETIMIBE [Concomitant]
     Dosage: 10 MG
     Route: 065
  6. NITRO?DUR [Concomitant]
     Active Substance: NITROGLYCERIN
     Dosage: 0.8 MG/HR
     Route: 065
  7. NOVO?SPIROTON [Concomitant]
     Dosage: 25 MG
     Route: 065
  8. SULFATE FERREUX [Concomitant]
     Dosage: 300 MG
     Route: 065
  9. PMS CLOPIDOGREL [Concomitant]
     Dosage: 75 MG
     Route: 065
  10. XELJANZ [Suspect]
     Active Substance: TOFACITINIB CITRATE
     Indication: COLITIS ULCERATIVE
     Dosage: 10 MG, 2X/DAY
     Route: 048
     Dates: start: 20210212
  11. ATORVASTATIN [Concomitant]
     Active Substance: ATORVASTATIN
     Dosage: 80 MG
     Route: 065
  12. APO METOPROLOL [Concomitant]
     Active Substance: METOPROLOL
     Dosage: 75 MG
     Route: 065
  13. SALOFALK [MESALAZINE] [Concomitant]
     Active Substance: MESALAMINE
     Dosage: UNK
  14. VEDOLIZUMAB [Concomitant]
     Active Substance: VEDOLIZUMAB
     Indication: COLITIS ULCERATIVE
     Dosage: UNK
  15. INFLIXIMAB [Suspect]
     Active Substance: INFLIXIMAB
     Indication: COLITIS ULCERATIVE
     Dosage: 1 DF

REACTIONS (5)
  - Treatment failure [Unknown]
  - Abdominal pain upper [Unknown]
  - Pyrexia [Unknown]
  - Heart rate decreased [Unknown]
  - Haemorrhage [Unknown]

NARRATIVE: CASE EVENT DATE: 202102
